FAERS Safety Report 24877711 (Version 4)
Quarter: 2025Q1

REPORT INFORMATION
  Report Type: Spontaneous
  Country: US (occurrence: US)
  Receive Date: 20250123
  Receipt Date: 20250313
  Transmission Date: 20250409
  Serious: No
  Sender: ELI LILLY AND COMPANY
  Company Number: US-ELI_LILLY_AND_COMPANY-US202411017000

PATIENT
  Age: 59 Year
  Sex: Female

DRUGS (18)
  1. INSULIN LISPRO [Suspect]
     Active Substance: INSULIN LISPRO
     Indication: Product used for unknown indication
     Route: 058
  2. INSULIN LISPRO [Suspect]
     Active Substance: INSULIN LISPRO
     Indication: Product used for unknown indication
     Route: 058
  3. INSULIN LISPRO [Suspect]
     Active Substance: INSULIN LISPRO
     Indication: Product used for unknown indication
     Route: 058
  4. INSULIN LISPRO [Suspect]
     Active Substance: INSULIN LISPRO
     Indication: Product used for unknown indication
     Route: 058
  5. INSULIN LISPRO [Suspect]
     Active Substance: INSULIN LISPRO
     Indication: Product used for unknown indication
     Route: 058
  6. INSULIN LISPRO [Suspect]
     Active Substance: INSULIN LISPRO
     Indication: Product used for unknown indication
     Route: 058
  7. INSULIN LISPRO [Suspect]
     Active Substance: INSULIN LISPRO
     Indication: Product used for unknown indication
     Route: 058
  8. INSULIN LISPRO [Suspect]
     Active Substance: INSULIN LISPRO
     Indication: Product used for unknown indication
     Route: 058
  9. INSULIN LISPRO [Suspect]
     Active Substance: INSULIN LISPRO
     Route: 058
  10. INSULIN LISPRO [Suspect]
     Active Substance: INSULIN LISPRO
     Route: 058
  11. INSULIN LISPRO [Suspect]
     Active Substance: INSULIN LISPRO
     Route: 058
  12. INSULIN LISPRO [Suspect]
     Active Substance: INSULIN LISPRO
     Route: 058
  13. INSULIN LISPRO [Suspect]
     Active Substance: INSULIN LISPRO
     Route: 058
  14. INSULIN LISPRO [Suspect]
     Active Substance: INSULIN LISPRO
     Route: 058
  15. INSULIN LISPRO [Suspect]
     Active Substance: INSULIN LISPRO
     Route: 058
  16. INSULIN LISPRO [Suspect]
     Active Substance: INSULIN LISPRO
     Route: 058
  17. INSULIN LISPRO [Suspect]
     Active Substance: INSULIN LISPRO
     Route: 058
  18. INSULIN LISPRO [Suspect]
     Active Substance: INSULIN LISPRO
     Route: 058

REACTIONS (3)
  - Glycosylated haemoglobin increased [Unknown]
  - Blood glucose increased [Unknown]
  - Product dose omission issue [Unknown]
